FAERS Safety Report 9820518 (Version 3)
Quarter: 2014Q3

REPORT INFORMATION
  Report Type: Spontaneous
  Country: US (occurrence: None)
  Receive Date: 20131028
  Receipt Date: 20140814
  Transmission Date: 20150326
  Serious: Yes (Other)
  Sender: FDA-Public Use
  Company Number: 2013US001780

PATIENT
  Age: 72 Year
  Sex: Male
  Weight: 93 kg

DRUGS (11)
  1. ATENOLOL (ATENOLOL) [Concomitant]
     Active Substance: ATENOLOL
  2. METROGEL (METRONIDAZOLE) [Concomitant]
  3. ALPRAZOLAM (ALPRAZOLAM) [Concomitant]
     Active Substance: ALPRAZOLAM
  4. ADVAIR DISKUS [Concomitant]
     Active Substance: FLUTICASONE PROPIONATE\SALMETEROL XINAFOATE
  5. ICLUSIG [Suspect]
     Active Substance: PONATINIB
     Indication: CHRONIC MYELOID LEUKAEMIA
     Route: 048
     Dates: start: 20130204, end: 20130422
  6. PLAVIX (CLOPIDOGREL BISULFATE) [Concomitant]
  7. LOSARTAN (LOSARTAN) [Concomitant]
     Active Substance: LOSARTAN
  8. HYDROCHLOROTHIAZIDE (HYDROCHLOROTHIAZIDE) [Concomitant]
     Active Substance: HYDROCHLOROTHIAZIDE
  9. WELCHOL (COLESEVELAM HYDROCHLORIDE) [Concomitant]
  10. ASA (ASA) [Concomitant]
  11. JANUMET [Concomitant]
     Active Substance: METFORMIN HYDROCHLORIDE\SITAGLIPTIN PHOSPHATE

REACTIONS (6)
  - Angina pectoris [None]
  - Faeces hard [None]
  - Chest pain [None]
  - Rash [None]
  - Fatigue [None]
  - Decreased appetite [None]

NARRATIVE: CASE EVENT DATE: 20130422
